FAERS Safety Report 9092759 (Version 1)
Quarter: 2013Q1

REPORT INFORMATION
  Report Type: Spontaneous
  Country: US (occurrence: None)
  Receive Date: 20130213
  Receipt Date: 20130213
  Transmission Date: 20140127
  Serious: Yes (Death)
  Sender: FDA-Public Use
  Company Number: None

PATIENT
  Age: 67 Year
  Sex: Male

DRUGS (2)
  1. TACROLIMUS [Suspect]
     Route: 048
  2. MYCOPHENOLATE [Suspect]
     Dosage: 250MG 4 TWICE DAILY PO

REACTIONS (1)
  - Death [None]
